FAERS Safety Report 9779058 (Version 1)
Quarter: 2013Q4

REPORT INFORMATION
  Report Type: Spontaneous
  Country: US (occurrence: US)
  Receive Date: 20131223
  Receipt Date: 20131223
  Transmission Date: 20140711
  Serious: No
  Sender: FDA-Public Use
  Company Number: US-PFIZER INC-2013366532

PATIENT
  Age: 71 Year
  Sex: Male
  Weight: 111 kg

DRUGS (5)
  1. XANAX [Suspect]
     Indication: NEUROPATHY PERIPHERAL
     Dosage: 0.5MG IN MORNING AND 0.25MG IN AFTERNOON
     Route: 048
     Dates: start: 2013
  2. LYRICA [Interacting]
     Indication: NEUROPATHY PERIPHERAL
     Dosage: 150 MG, 2X/DAY
     Route: 048
     Dates: start: 2013
  3. VICTOZA [Concomitant]
     Indication: DIABETES MELLITUS
     Dosage: UNK, 1X/DAY
  4. COSOPT [Concomitant]
     Indication: BORDERLINE GLAUCOMA
     Dosage: 1 GTT, 2X/DAY
  5. SIMVASTATIN [Concomitant]
     Indication: BLOOD CHOLESTEROL ABNORMAL
     Dosage: 40 MG, DAILY

REACTIONS (3)
  - Drug ineffective [Unknown]
  - Drug interaction [Unknown]
  - Off label use [Unknown]
